FAERS Safety Report 6369712-7 (Version None)
Quarter: 2009Q3

REPORT INFORMATION
  Report Type: 
  Country: None (occurrence: None)
  Receive Date: 20090918
  Receipt Date: 20090909
  Transmission Date: 20100115
  Serious: Yes (Other)
  Sender: FDA-Public Use
  Company Number: JPI-P-008534

PATIENT
  Age: 39 Year
  Sex: Female

DRUGS (1)
  1. XYREM [Suspect]
     Indication: NARCOLEPSY
     Dosage: 4.5 MG (2.25 GM, 2 IN 1 D), ORAL
     Route: 048
     Dates: start: 20090807, end: 20090902

REACTIONS (4)
  - ANXIETY [None]
  - CRYING [None]
  - MIDDLE INSOMNIA [None]
  - SUICIDAL BEHAVIOUR [None]
